FAERS Safety Report 14894961 (Version 2)
Quarter: 2018Q2

REPORT INFORMATION
  Report Type: Spontaneous
  Country: VE (occurrence: VE)
  Receive Date: 20180515
  Receipt Date: 20180530
  Transmission Date: 20180711
  Serious: Yes (Death, Congenital Anomaly, Other)
  Sender: FDA-Public Use
  Company Number: VE-SUN PHARMACEUTICAL INDUSTRIES LTD-2018RR-172753

PATIENT
  Sex: Male
  Weight: 1.54 kg

DRUGS (1)
  1. ISOTRETINOIN. [Suspect]
     Active Substance: ISOTRETINOIN
     Indication: PRODUCT USED FOR UNKNOWN INDICATION
     Dosage: IN THE PERICONCEPTIONAL PERIOD
     Route: 064

REACTIONS (7)
  - Foetal exposure during pregnancy [Unknown]
  - Neonatal respiratory distress syndrome [Unknown]
  - Apnoea [Unknown]
  - Cardio-respiratory arrest [Fatal]
  - Premature baby [Unknown]
  - Hypothermia [Unknown]
  - Foetal retinoid syndrome [Unknown]
